FAERS Safety Report 20840980 (Version 1)
Quarter: 2022Q2

REPORT INFORMATION
  Report Type: Spontaneous
  Country: US (occurrence: US)
  Receive Date: 20220517
  Receipt Date: 20220517
  Transmission Date: 20220721
  Serious: No
  Sender: FDA-Public Use
  Company Number: US-PFIZER INC-202101830792

PATIENT
  Age: 43 Year
  Sex: Female

DRUGS (2)
  1. HYDROXYZINE PAMOATE [Suspect]
     Active Substance: HYDROXYZINE PAMOATE
     Indication: Anxiety
     Dosage: EVERY 2 HOURS FOR 1 WEEK
  2. ATIVAN [Suspect]
     Active Substance: LORAZEPAM
     Indication: Anxiety
     Dosage: EVERY 2 HOURS

REACTIONS (4)
  - Chest discomfort [Unknown]
  - Blood pressure increased [Unknown]
  - Off label use [Unknown]
  - Intentional product misuse [Unknown]
